FAERS Safety Report 9124230 (Version 1)
Quarter: 2013Q1

REPORT INFORMATION
  Report Type: Report from Study
  Country: US (occurrence: US)
  Receive Date: 20130227
  Receipt Date: 20130227
  Transmission Date: 20140127
  Serious: Yes (Other)
  Sender: FDA-Public Use
  Company Number: US-BAYER-2012-119016

PATIENT
  Age: 43 Year
  Sex: Female
  Weight: 88.89 kg

DRUGS (9)
  1. BETASERON [Suspect]
     Indication: RELAPSING-REMITTING MULTIPLE SCLEROSIS
     Dosage: 8 MIU, QOD
     Route: 058
     Dates: start: 20120426, end: 20121010
  2. NUVARING [Concomitant]
     Dosage: UNK
  3. ALEVE CAPLET/TABLET,MIDOL EXTENDED RELIEF CAPLET [Suspect]
     Dosage: 200 MG, QD/PRN
  4. MULTIVITAMIN [Concomitant]
     Dosage: UNK UNK, QD
  5. VITAMIN D3 [Concomitant]
     Dosage: 1000 U, QD
  6. VITAMIN B12 [Concomitant]
     Dosage: 1 DF, QD
     Route: 048
  7. FISH OIL [Concomitant]
     Dosage: 1 DF, QD
     Route: 048
  8. TUMS [CALCIUM CARBONATE] [Concomitant]
     Dosage: UNK UNK, PRN
  9. AMANTADINE HCL [Concomitant]
     Dosage: 100 MG, 1-2 QD
     Route: 048

REACTIONS (19)
  - Hepatic enzyme increased [None]
  - Multiple sclerosis relapse [Recovering/Resolving]
  - Dizziness [Recovering/Resolving]
  - Speech disorder [Recovering/Resolving]
  - Cognitive disorder [Recovering/Resolving]
  - Fatigue [Recovering/Resolving]
  - Ataxia [Recovering/Resolving]
  - Depression [Recovering/Resolving]
  - Muscular weakness [Recovering/Resolving]
  - Muscle spasms [Recovering/Resolving]
  - Hypoaesthesia [Recovering/Resolving]
  - Memory impairment [Recovering/Resolving]
  - Mental impairment [Recovering/Resolving]
  - Balance disorder [Recovering/Resolving]
  - Pain [Recovering/Resolving]
  - Vision blurred [Recovering/Resolving]
  - Temperature intolerance [Recovering/Resolving]
  - Dizziness [Recovering/Resolving]
  - Dyskinesia [Recovering/Resolving]
